FAERS Safety Report 6418646-8 (Version None)
Quarter: 2009Q4

REPORT INFORMATION
  Report Type: 
  Country: None (occurrence: None)
  Receive Date: 20091028
  Receipt Date: 20091016
  Transmission Date: 20100525
  Serious: Yes (Hospitalization)
  Sender: FDA-Public Use
  Company Number: US-AMGEN-US314770

PATIENT
  Weight: 3.66 kg

DRUGS (6)
  1. ENBREL [Suspect]
     Indication: PSORIASIS
     Route: 064
     Dates: start: 20071216, end: 20080112
  2. ENBREL [Suspect]
     Indication: PSORIATIC ARTHROPATHY
  3. VITAMIN TAB [Concomitant]
     Route: 064
     Dates: start: 20080112, end: 20080917
  4. CAFFEINE [Concomitant]
     Route: 064
     Dates: start: 20080112, end: 20080611
  5. ALCOHOL [Concomitant]
     Route: 064
     Dates: start: 20071216, end: 20080112
  6. GLIPIZIDE [Concomitant]
     Route: 064
     Dates: start: 20080722, end: 20080917

REACTIONS (4)
  - BLOOD GLUCOSE DECREASED [None]
  - JAUNDICE NEONATAL [None]
  - NEONATAL ASPIRATION [None]
  - SEPSIS NEONATAL [None]
